FAERS Safety Report 8791620 (Version 1)
Quarter: 2012Q4

REPORT INFORMATION
  Report Type: 
  Country: US (occurrence: US)
  Receive Date: 20120918
  Receipt Date: 20120918
  Transmission Date: 20130627
  Serious: Yes (Other)
  Sender: FDA-Public Use
  Company Number: PHEH2012US017815

PATIENT
  Age: 63 Year
  Sex: Male

DRUGS (3)
  1. EXJADE [Suspect]
     Indication: IRON OVERLOAD
     Dosage: 1500 mg, BID
     Route: 048
     Dates: start: 20120815, end: 20120901
  2. PENICILLIN V POTASSIUM [Concomitant]
  3. VANCOMYCIN [Concomitant]

REACTIONS (7)
  - Dehydration [Unknown]
  - Glossitis [Unknown]
  - Fatigue [Unknown]
  - Vomiting [Unknown]
  - Nausea [Unknown]
  - Renal function test abnormal [Unknown]
  - Liver function test abnormal [Unknown]
